FAERS Safety Report 19288162 (Version 1)
Quarter: 2021Q2

REPORT INFORMATION
  Report Type: Spontaneous
  Country: TW (occurrence: TW)
  Receive Date: 20210521
  Receipt Date: 20210521
  Transmission Date: 20210717
  Serious: Yes (Other)
  Sender: FDA-Public Use
  Company Number: TW-DSJP-DSJ-2021-115115AA

PATIENT
  Age: 50 Year
  Sex: Female

DRUGS (4)
  1. CEVIMELINE HYDROCHLORIDE HYDRATE [Suspect]
     Active Substance: CEVIMELINE HYDROCHLORIDE
     Indication: DRY MOUTH
     Dosage: UNK
     Route: 048
  2. CEVIMELINE HYDROCHLORIDE HYDRATE [Suspect]
     Active Substance: CEVIMELINE HYDROCHLORIDE
     Dosage: UNK
     Route: 065
  3. DURATEARS                          /00635701/ [Concomitant]
     Indication: LACRIMAL DISORDER
     Dosage: UNK
     Route: 065
  4. ERISPAN                            /00565701/ [Concomitant]
     Indication: SEDATION
     Dosage: UNK
     Route: 065

REACTIONS (3)
  - Hyperhidrosis [Unknown]
  - Drug ineffective [Unknown]
  - Feeling hot [Unknown]
